FAERS Safety Report 9785465 (Version 1)
Quarter: 2013Q4

REPORT INFORMATION
  Report Type: Spontaneous
  Country: FR (occurrence: None)
  Receive Date: 20131224
  Receipt Date: 20131224
  Transmission Date: 20140711
  Serious: Yes (Other)
  Sender: FDA-Public Use
  Company Number: 2077031

PATIENT
  Age: 55 Year
  Sex: Male

DRUGS (9)
  1. (CARBOPLATIN) [Suspect]
     Indication: CHEMOTHERAPY
     Route: 041
     Dates: start: 20131011, end: 20131011
  2. (GEMCITABINE) [Concomitant]
  3. (DEXAMETHASONE) [Concomitant]
  4. (ONDANSETRON) [Concomitant]
  5. (PARACETAMOL) [Concomitant]
  6. (PREDNISONE) [Concomitant]
  7. (POTASSIUM CHLORIDE) [Concomitant]
  8. (PANTOPRAZOLE) [Concomitant]
  9. (FENTANYL) [Concomitant]

REACTIONS (5)
  - Erythema [None]
  - Feeling hot [None]
  - Urticaria [None]
  - Oedema [None]
  - Dyspnoea [None]
